FAERS Safety Report 25189111 (Version 1)
Quarter: 2025Q2

REPORT INFORMATION
  Report Type: Spontaneous
  Country: GB (occurrence: GB)
  Receive Date: 20250411
  Receipt Date: 20250411
  Transmission Date: 20250717
  Serious: Yes (Other)
  Sender: BRAEBURN PHARMACEUTICALS
  Company Number: GB-Camurus-CAM-2025-000392

PATIENT
  Sex: Female

DRUGS (1)
  1. BUPRENORPHINE [Suspect]
     Active Substance: BUPRENORPHINE
     Indication: Drug abuse
     Route: 065

REACTIONS (3)
  - Seizure [Unknown]
  - Syncope [Unknown]
  - Vomiting [Recovering/Resolving]
